FAERS Safety Report 9904830 (Version 1)
Quarter: 2014Q1

REPORT INFORMATION
  Report Type: Spontaneous
  Country: TW (occurrence: TW)
  Receive Date: 20140218
  Receipt Date: 20140218
  Transmission Date: 20141002
  Serious: Yes (Hospitalization, Other)
  Sender: FDA-Public Use
  Company Number: TW-SA-2014SA009685

PATIENT
  Age: 73 Year
  Sex: Female

DRUGS (2)
  1. PLAVIX [Suspect]
     Indication: MYOCARDIAL ISCHAEMIA
     Route: 065
     Dates: start: 20130110
  2. BOKEY [Concomitant]

REACTIONS (1)
  - Loss of consciousness [Not Recovered/Not Resolved]
